FAERS Safety Report 9851287 (Version 1)
Quarter: 2014Q1

REPORT INFORMATION
  Report Type: Report from Study
  Country: MX (occurrence: MX)
  Receive Date: 20140128
  Receipt Date: 20140128
  Transmission Date: 20141002
  Serious: Yes (Other)
  Sender: FDA-Public Use
  Company Number: PHHY2012MX071192

PATIENT
  Age: 10 Year
  Sex: Female

DRUGS (2)
  1. RITALIN [Suspect]
     Indication: ATTENTION DEFICIT/HYPERACTIVITY DISORDER
     Dosage: 2 DF, UNK
     Route: 048
     Dates: start: 201205, end: 20120813
  2. RITALIN [Suspect]
     Dosage: 1 AND 3/4 OF TABLET OF 10 MG DAILY
     Route: 048
     Dates: start: 20120813

REACTIONS (6)
  - Mania [Recovered/Resolved]
  - Grimacing [Recovered/Resolved]
  - Eye movement disorder [Recovered/Resolved]
  - Drug intolerance [Not Recovered/Not Resolved]
  - Anxiety [Recovered/Resolved]
  - Headache [Recovered/Resolved]
